FAERS Safety Report 4629420-7 (Version None)
Quarter: 2005Q2

REPORT INFORMATION
  Report Type: 
  Country: None (occurrence: None)
  Receive Date: 20050405
  Receipt Date: 20050323
  Transmission Date: 20051028
  Serious: Yes (Other)
  Sender: FDA-Public Use
  Company Number: 2005050375

PATIENT
  Age: 12 Year
  Sex: Female
  Weight: 50 kg

DRUGS (1)
  1. FLUCONAZOLE [Suspect]
     Indication: ILL-DEFINED DISORDER
     Dosage: )50 MG, SINGLE), ORAL
     Route: 048
     Dates: start: 20050307, end: 20050308

REACTIONS (1)
  - HALLUCINATION, VISUAL [None]
